FAERS Safety Report 15748152 (Version 4)
Quarter: 2019Q1

REPORT INFORMATION
  Report Type: Report from Study
  Country: None (occurrence: US)
  Receive Date: 20181221
  Receipt Date: 20190130
  Transmission Date: 20190417
  Serious: Yes (Hospitalization)
  Sender: FDA-Public Use
  Company Number: US-ABBVIE-18K-163-2593652-00

PATIENT
  Age: 60 Year
  Sex: Female
  Weight: 72.64 kg

DRUGS (2)
  1. HUMIRA [Suspect]
     Active Substance: ADALIMUMAB
     Route: 058
     Dates: start: 201901
  2. HUMIRA [Suspect]
     Active Substance: ADALIMUMAB
     Indication: RHEUMATOID ARTHRITIS
     Route: 058
     Dates: start: 20180907, end: 20190107

REACTIONS (14)
  - Hyperhidrosis [Unknown]
  - Fatigue [Not Recovered/Not Resolved]
  - Chest pain [Recovered/Resolved]
  - Computerised tomogram thorax abnormal [Unknown]
  - Malaise [Unknown]
  - Finger deformity [Unknown]
  - Hepatic enzyme increased [Unknown]
  - Pulmonary mass [Unknown]
  - Cough [Unknown]
  - Arthralgia [Unknown]
  - Hepatic enzyme increased [Recovered/Resolved]
  - Skin discolouration [Recovered/Resolved]
  - Rales [Not Recovered/Not Resolved]
  - Dyspnoea [Recovering/Resolving]

NARRATIVE: CASE EVENT DATE: 2018
